FAERS Safety Report 22128675 (Version 1)
Quarter: 2023Q1

REPORT INFORMATION
  Report Type: Spontaneous
  Country: US (occurrence: US)
  Receive Date: 20230323
  Receipt Date: 20230323
  Transmission Date: 20230417
  Serious: No
  Sender: FDA-Public Use
  Company Number: US-APIL-2309099US

PATIENT
  Age: 14 Year
  Sex: Female

DRUGS (2)
  1. LINZESS [Suspect]
     Active Substance: LINACLOTIDE
     Dates: start: 20200101
  2. MOTEGRITY [Concomitant]
     Active Substance: PRUCALOPRIDE SUCCINATE
     Route: 048

REACTIONS (2)
  - Gastrointestinal hypomotility [Unknown]
  - Constipation [Unknown]

NARRATIVE: CASE EVENT DATE: 20200101
